FAERS Safety Report 13301445 (Version 1)
Quarter: 2017Q1

REPORT INFORMATION
  Report Type: Spontaneous
  Country: US (occurrence: US)
  Receive Date: 20170307
  Receipt Date: 20170307
  Transmission Date: 20170428
  Serious: Yes (Other)
  Sender: FDA-Public Use
  Company Number: US-ELI_LILLY_AND_COMPANY-US201608004355

PATIENT
  Sex: Female
  Weight: 74 kg

DRUGS (1)
  1. CYMBALTA [Suspect]
     Active Substance: DULOXETINE HYDROCHLORIDE
     Indication: PRODUCT USED FOR UNKNOWN INDICATION
     Dosage: UNK, UNKNOWN
     Route: 065

REACTIONS (15)
  - Dysphoria [Unknown]
  - Paraesthesia [Unknown]
  - Irritability [Unknown]
  - Anger [Recovered/Resolved]
  - Insomnia [Unknown]
  - Drug withdrawal syndrome [Unknown]
  - Tinnitus [Unknown]
  - Affect lability [Unknown]
  - Agitation [Unknown]
  - Vertigo [Unknown]
  - Fatigue [Unknown]
  - Dizziness [Unknown]
  - Lethargy [Unknown]
  - Suicidal ideation [Unknown]
  - Anxiety [Recovered/Resolved]
